FAERS Safety Report 5621114-4 (Version None)
Quarter: 2008Q1

REPORT INFORMATION
  Report Type: 
  Country: None (occurrence: None)
  Receive Date: 20080114
  Receipt Date: 20070112
  Transmission Date: 20080703
  Serious: Yes (Other)
  Sender: FDA-Public Use
  Company Number: A03200700359

PATIENT
  Age: 68 Year
  Sex: Female
  Weight: 73.47 kg

DRUGS (6)
  1. PLAVIX [Suspect]
     Indication: CARDIAC OPERATION
     Dosage: 75 MG QD - ORAL
     Route: 048
     Dates: start: 20050901, end: 20061219
  2. PLAVIX [Suspect]
     Indication: CARDIAC OPERATION
     Dosage: 75 MG QOD - ORAL
     Route: 048
     Dates: start: 20061220
  3. ACETYLSALICYLIC ACID SRT [Concomitant]
  4. MESALAMINE [Concomitant]
  5. ROSUVASTATIN [Concomitant]
  6. EZETIMIBE [Concomitant]

REACTIONS (2)
  - INTESTINAL HAEMORRHAGE [None]
  - THROMBOSIS [None]
